FAERS Safety Report 7972030-4 (Version None)
Quarter: 2011Q4

REPORT INFORMATION
  Report Type: 
  Country: None (occurrence: None)
  Receive Date: 20111212
  Receipt Date: 20111208
  Transmission Date: 20120403
  Serious: Yes (Other)
  Sender: FDA-Public Use
  Company Number: BR-PFIZER INC-2010115227

PATIENT
  Age: 62 Year
  Sex: Female
  Weight: 57 kg

DRUGS (7)
  1. BONALEN [Concomitant]
     Indication: VITAMIN D
  2. CALCIUM CARBONATE [Concomitant]
     Indication: OSTEOPOROSIS
     Dosage: UNK
     Dates: start: 19900101
  3. ADEROGIL [Concomitant]
     Indication: VITAMIN D DECREASED
     Dosage: UNK
  4. VARENICLINE TARTRATE [Suspect]
     Dosage: 1 MG, 2X/DAY
     Route: 048
  5. CALCIUM [Concomitant]
     Indication: OSTEOPOROSIS
     Dosage: UNK (4 OR 5 YEARS)
  6. VARENICLINE TARTRATE [Suspect]
     Indication: TOBACCO USER
     Dosage: 0.5 MG, 1X/DAY
     Route: 048
     Dates: start: 20100913
  7. BONALEN [Concomitant]
     Indication: OSTEOPOROSIS
     Dosage: UNK
     Dates: start: 19900101

REACTIONS (3)
  - AGITATION [None]
  - NERVOUSNESS [None]
  - ANXIETY [None]
